FAERS Safety Report 5445914-9 (Version None)
Quarter: 2007Q3

REPORT INFORMATION
  Report Type: 
  Country: None (occurrence: None)
  Receive Date: 20070904
  Receipt Date: 20070814
  Transmission Date: 20080115
  Serious: Yes (Hospitalization)
  Sender: FDA-Public Use
  Company Number: 6036971

PATIENT
  Sex: Female

DRUGS (5)
  1. GLIFAGE 850 MG (850 MG, TABLET) (METFORMIN) [Suspect]
     Indication: DIABETES MELLITUS
     Dosage: 2550 MG (850 MG, 3 IN 1 D) ORAL
     Route: 048
     Dates: start: 20051101, end: 20070801
  2. GLIFAGE 500 MG (500 MG, TABLET) (METFORMIN) [Suspect]
     Indication: DIABETES MELLITUS
     Dosage: ORAL
     Route: 048
     Dates: end: 20070812
  3. CRESTOR [Concomitant]
  4. DILTIAZEM [Concomitant]
  5. PINAVERIUM BROMIDE (PINAVERIUM BROMIDE) [Concomitant]

REACTIONS (7)
  - CEREBRAL ISCHAEMIA [None]
  - CEREBROVASCULAR ACCIDENT [None]
  - DIARRHOEA [None]
  - FATIGUE [None]
  - MALAISE [None]
  - NAUSEA [None]
  - PLATELET COUNT DECREASED [None]
